FAERS Safety Report 10096667 (Version 1)
Quarter: 2014Q2

REPORT INFORMATION
  Report Type: Spontaneous
  Country: US (occurrence: US)
  Receive Date: 20140422
  Receipt Date: 20140422
  Transmission Date: 20141212
  Serious: No
  Sender: FDA-Public Use
  Company Number: US-PFIZER INC-2014110557

PATIENT
  Age: 44 Year
  Sex: Female
  Weight: 72.56 kg

DRUGS (3)
  1. ZIPRASIDONE HCL [Suspect]
     Indication: PSYCHOTIC DISORDER
     Dosage: 120 MG, UNK
     Dates: start: 201305
  2. ZIPRASIDONE HCL [Suspect]
     Dosage: 20 MG, 2X/DAY
  3. ABILIFY [Concomitant]
     Dosage: 5 MG, DAILY

REACTIONS (3)
  - Memory impairment [Unknown]
  - Malaise [Unknown]
  - Nausea [Unknown]
